FAERS Safety Report 7462258-4 (Version None)
Quarter: 2011Q2

REPORT INFORMATION
  Report Type: 
  Country: None (occurrence: None)
  Receive Date: 20110506
  Receipt Date: 20110414
  Transmission Date: 20111010
  Serious: Yes (Hospitalization)
  Sender: FDA-Public Use
  Company Number: US-BAYER-2011-002780

PATIENT
  Age: 38 Year
  Sex: Female
  Weight: 84.5 kg

DRUGS (4)
  1. PHENOBARBITAL [Concomitant]
     Dosage: UNK UNK, TID
     Route: 048
  2. BELLADONNA HERB [Concomitant]
     Dosage: UNK UNK, TID
     Route: 048
  3. YAZ [Suspect]
     Indication: PRODUCT USED FOR UNKNOWN INDICATION
  4. LUVOX [Concomitant]
     Dosage: 50 MG, QD
     Route: 048

REACTIONS (9)
  - PULMONARY EMBOLISM [None]
  - PAIN [None]
  - ANGIOPATHY [None]
  - TRAUMATIC LUNG INJURY [None]
  - EMOTIONAL DISTRESS [None]
  - FATIGUE [None]
  - PULMONARY INFARCTION [None]
  - ANXIETY [None]
  - ASTHENIA [None]
